FAERS Safety Report 7711493-6 (Version None)
Quarter: 2011Q3

REPORT INFORMATION
  Report Type: 
  Country: None (occurrence: None)
  Receive Date: 20110826
  Receipt Date: 20110816
  Transmission Date: 20111222
  Serious: No
  Sender: FDA-Public Use
  Company Number: US-BAYER-2011-046581

PATIENT
  Age: 33 Year
  Sex: Female

DRUGS (4)
  1. DIFLUCAN [Concomitant]
     Indication: FUNGAL INFECTION
  2. METROGEL [Concomitant]
     Indication: VAGINITIS BACTERIAL
  3. DOXYCYCLINE [Concomitant]
     Indication: ACNE
     Dosage: 100 MG, BID
  4. MIRENA [Suspect]
     Indication: MENORRHAGIA
     Dosage: UNK
     Route: 015
     Dates: start: 20100915, end: 20110526

REACTIONS (9)
  - VAGINAL HAEMORRHAGE [None]
  - ANXIETY [None]
  - FUNGAL INFECTION [None]
  - ABDOMINAL PAIN [None]
  - DEPRESSION [None]
  - VAGINITIS BACTERIAL [None]
  - VAGINAL ODOUR [None]
  - DEVICE EXPULSION [None]
  - ACNE [None]
